FAERS Safety Report 10287549 (Version 1)
Quarter: 2014Q3

REPORT INFORMATION
  Report Type: Spontaneous
  Country: FR (occurrence: None)
  Receive Date: 20140707
  Receipt Date: 20140707
  Transmission Date: 20150326
  Serious: Yes (Hospitalization)
  Sender: FDA-Public Use
  Company Number: SYM-2014-22492

PATIENT
  Age: 87 Year
  Sex: Male

DRUGS (7)
  1. TILDIEM [Suspect]
     Active Substance: DILTIAZEM HYDROCHLORIDE
     Indication: PRODUCT USED FOR UNKNOWN INDICATION
     Route: 048
     Dates: start: 20140213, end: 20140306
  2. CIFLOX (CIPROFLOXACIN) (CIPROFLOXACIN) [Concomitant]
  3. PAROXETINE (PAROXETINE) [Concomitant]
     Active Substance: PAROXETINE HYDROCHLORIDE
  4. FORLAX (MACROGOL) (MACROGOL) [Concomitant]
  5. PREVISCAN [Suspect]
     Active Substance: FLUINDIONE
     Indication: PRODUCT USED FOR UNKNOWN INDICATION
     Route: 048
     Dates: end: 20140209
  6. FLECAINE (FLECAINIDE ACETATE) (FLECAINIDE ACETATE) [Concomitant]
  7. ROCEPHIN (CEFTRIAXONE SODIUM) (CEFTRIAXONE SODIUM) [Concomitant]

REACTIONS (9)
  - Escherichia urinary tract infection [None]
  - General physical health deterioration [None]
  - Dehydration [None]
  - Diarrhoea [None]
  - Purpura [None]
  - Productive cough [None]
  - Rhonchi [None]
  - Electrolyte imbalance [None]
  - Erythema [None]

NARRATIVE: CASE EVENT DATE: 20140228
